FAERS Safety Report 20628056 (Version 1)
Quarter: 2022Q1

REPORT INFORMATION
  Report Type: Report from Study
  Country: US (occurrence: US)
  Receive Date: 20220323
  Receipt Date: 20220323
  Transmission Date: 20220424
  Serious: Yes (Other)
  Sender: FDA-Public Use
  Company Number: US-BIOVITRUM-2021US12226

PATIENT
  Sex: Female

DRUGS (1)
  1. KINERET [Suspect]
     Active Substance: ANAKINRA
     Indication: Rheumatoid arthritis
     Route: 058
     Dates: start: 20201109

REACTIONS (10)
  - Choking [Unknown]
  - Nasal congestion [Unknown]
  - Cough [Unknown]
  - Nasopharyngitis [Unknown]
  - Pain [Unknown]
  - Depression [Unknown]
  - Fungal infection [Unknown]
  - Rash [Unknown]
  - Injection site mass [Unknown]
  - Injection site pruritus [Unknown]
